FAERS Safety Report 21256465 (Version 1)
Quarter: 2022Q3

REPORT INFORMATION
  Report Type: Spontaneous
  Country: US (occurrence: US)
  Receive Date: 20220826
  Receipt Date: 20220826
  Transmission Date: 20221027
  Serious: Yes (Death)
  Sender: FDA-Public Use
  Company Number: US-BRISTOL-MYERS SQUIBB COMPANY-2022-095402

PATIENT
  Age: 79 Year
  Sex: Male
  Weight: 69.85 kg

DRUGS (1)
  1. INREBIC [Suspect]
     Active Substance: FEDRATINIB HYDROCHLORIDE
     Indication: Anaemia
     Dosage: DAILY
     Route: 048
     Dates: start: 20220501

REACTIONS (3)
  - Intentional product use issue [Unknown]
  - Cardiac disorder [Fatal]
  - Disease progression [Fatal]

NARRATIVE: CASE EVENT DATE: 20220812
